FAERS Safety Report 9735831 (Version 1)
Quarter: 2013Q4

REPORT INFORMATION
  Report Type: Spontaneous
  Country: US (occurrence: US)
  Receive Date: 20131206
  Receipt Date: 20131206
  Transmission Date: 20140711
  Serious: No
  Sender: FDA-Public Use
  Company Number: US-GILEAD-2009-0023784

PATIENT
  Sex: Male
  Weight: 74.84 kg

DRUGS (13)
  1. LETAIRIS [Suspect]
     Indication: PULMONARY ARTERIAL HYPERTENSION
     Route: 048
     Dates: start: 20090617
  2. WARFARIN [Concomitant]
  3. SILDENAFIL [Concomitant]
  4. FUROSEMIDE [Concomitant]
  5. BENAZEPRIL HCL [Concomitant]
  6. SIMVASTATIN [Concomitant]
  7. FORADIL [Concomitant]
  8. ASMANEX [Concomitant]
  9. THEOPHYLLINE [Concomitant]
  10. OMEPRAZOLE [Concomitant]
  11. POTASSIUM [Concomitant]
  12. MULTIVITAMINS W/MINERALS [Concomitant]
  13. STOOL SOFTENER [Concomitant]

REACTIONS (1)
  - Pain in extremity [Unknown]
